FAERS Safety Report 4970333-9 (Version None)
Quarter: 2006Q2

REPORT INFORMATION
  Report Type: 
  Country: None (occurrence: None)
  Receive Date: 20060412
  Receipt Date: 20060329
  Transmission Date: 20061013
  Serious: Yes (Hospitalization, Other)
  Sender: FDA-Public Use
  Company Number: US-AMGEN-US170473

PATIENT
  Sex: Male
  Weight: 113 kg

DRUGS (6)
  1. EPOGEN [Suspect]
     Indication: DIALYSIS
     Route: 042
     Dates: start: 20041022
  2. NORVASC [Concomitant]
     Dates: start: 20051101
  3. LEXAPRO [Concomitant]
     Dates: start: 20050401
  4. LISINOPRIL [Concomitant]
  5. INSULIN [Concomitant]
     Dates: start: 20050401
  6. CYANOCOBALAMIN [Concomitant]
     Dates: start: 20050401

REACTIONS (10)
  - ARTERIOVENOUS GRAFT SITE ABSCESS [None]
  - BLOOD IRON ABNORMAL [None]
  - BONE MARROW PLASMACYTE COUNT INCREASED [None]
  - CARNITINE DEFICIENCY [None]
  - DIARRHOEA [None]
  - PANCYTOPENIA [None]
  - STAPHYLOCOCCAL SEPSIS [None]
  - THERAPEUTIC RESPONSE DECREASED [None]
  - THROMBOCYTOPENIA [None]
  - TOE AMPUTATION [None]
